FAERS Safety Report 7692367-6 (Version None)
Quarter: 2011Q3

REPORT INFORMATION
  Report Type: 
  Country: None (occurrence: None)
  Receive Date: 20110818
  Receipt Date: 20110810
  Transmission Date: 20111222
  Serious: Yes (Hospitalization)
  Sender: FDA-Public Use
  Company Number: JP-NOVOPROD-332701

PATIENT

DRUGS (8)
  1. ROHYPNOL [Concomitant]
     Indication: INSOMNIA
     Dosage: 2
     Route: 048
  2. VICTOZA [Suspect]
     Dosage: 0.6 MG, QD
     Route: 058
  3. VICTOZA [Suspect]
     Dosage: 0.9 MG, QD
     Route: 058
     Dates: end: 20110717
  4. LIPIDIL [Concomitant]
     Indication: DYSLIPIDAEMIA
     Dosage: 200 MG, QD
     Route: 048
     Dates: start: 20110507, end: 20110717
  5. LANSOPRAZOLE [Concomitant]
     Indication: DYSLIPIDAEMIA
     Dosage: 15
     Route: 048
  6. BAXO [Concomitant]
     Indication: GASTRITIS
     Dosage: 20 MG, QD
     Route: 048
  7. LORAMET [Concomitant]
     Indication: INSOMNIA
     Dosage: 1.0
     Route: 048
  8. VICTOZA [Suspect]
     Indication: TYPE 2 DIABETES MELLITUS
     Dosage: 0.3 MG, QD
     Route: 058
     Dates: start: 20110507

REACTIONS (1)
  - PANCREATITIS ACUTE [None]
